FAERS Safety Report 4823107-3 (Version None)
Quarter: 2005Q4

REPORT INFORMATION
  Report Type: 
  Country: None (occurrence: None)
  Receive Date: 20051108
  Receipt Date: 20050407
  Transmission Date: 20060501
  Serious: Yes (Death)
  Sender: FDA-Public Use
  Company Number: CH-MERCK-0504CHE00012

PATIENT
  Age: 41 Year
  Sex: Male

DRUGS (1)
  1. VIOXX [Suspect]
     Route: 065

REACTIONS (2)
  - CARDIAC FAILURE ACUTE [None]
  - CORONARY ARTERY THROMBOSIS [None]
